FAERS Safety Report 24698821 (Version 1)
Quarter: 2024Q4

REPORT INFORMATION
  Report Type: Other
  Country: US (occurrence: US)
  Receive Date: 20241205
  Receipt Date: 20241205
  Transmission Date: 20250114
  Serious: Yes (Hospitalization)
  Sender: ANI
  Company Number: US-ANIPHARMA-013029

PATIENT
  Age: 30 Year
  Sex: Male

DRUGS (1)
  1. FUROSEMIDE [Suspect]
     Active Substance: FUROSEMIDE
     Indication: Hypertension

REACTIONS (1)
  - Renin increased [Recovered/Resolved]
